FAERS Safety Report 5449516-X (Version None)
Quarter: 2007Q3

REPORT INFORMATION
  Report Type: 
  Country: None (occurrence: None)
  Receive Date: 20070907
  Receipt Date: 20070831
  Transmission Date: 20080115
  Serious: Yes (Other)
  Sender: FDA-Public Use
  Company Number: 017969

PATIENT
  Age: 43 Year
  Sex: Female

DRUGS (3)
  1. CLARAVIS [Suspect]
     Indication: ACNE
     Dosage: 40 MG, QD, ORAL
     Route: 048
     Dates: start: 20070428, end: 20070728
  2. ZOLOFT [Concomitant]
  3. ZYRTEC-D 12 HOUR [Concomitant]

REACTIONS (1)
  - SUICIDAL IDEATION [None]
